FAERS Safety Report 6364845-3 (Version None)
Quarter: 2009Q3

REPORT INFORMATION
  Report Type: 
  Country: None (occurrence: None)
  Receive Date: 20090919
  Receipt Date: 20090728
  Transmission Date: 20100115
  Serious: No
  Sender: FDA-Public Use
  Company Number: US-ABBOTT-09P-163-0588856-00

PATIENT
  Sex: Female
  Weight: 61.29 kg

DRUGS (5)
  1. HUMIRA [Suspect]
     Indication: RHEUMATOID ARTHRITIS
     Route: 058
     Dates: start: 20080101, end: 20081101
  2. HUMIRA [Suspect]
     Route: 058
  3. HUMIRA [Suspect]
     Route: 058
  4. HUMIRA [Suspect]
     Route: 058
  5. PERCOCET [Concomitant]
     Indication: PAIN
     Dosage: 5MG PER TAB, EVERY 4 HRS OR 15MG Q6HRS DURING THE FLARE UP
     Route: 048

REACTIONS (3)
  - ARTHRITIS [None]
  - COUGH [None]
  - NASOPHARYNGITIS [None]
